FAERS Safety Report 16551642 (Version 1)
Quarter: 2019Q3

REPORT INFORMATION
  Report Type: Spontaneous
  Country: US (occurrence: US)
  Receive Date: 20190710
  Receipt Date: 20190710
  Transmission Date: 20191004
  Serious: Yes (Other)
  Sender: FDA-Public Use
  Company Number: US-PFIZER INC-2019290480

PATIENT
  Age: 5 Year
  Sex: Male

DRUGS (1)
  1. GENOTROPIN [Suspect]
     Active Substance: SOMATROPIN
     Indication: EYE DISORDER
     Dosage: 0.4 MG, DAILY
     Dates: end: 20151218

REACTIONS (6)
  - Product use in unapproved indication [Unknown]
  - Aortic valve disease [Unknown]
  - Off label use [Unknown]
  - Left ventricle outflow tract obstruction [Unknown]
  - Aortic valve incompetence [Unknown]
  - Left ventricular hypertrophy [Unknown]
